FAERS Safety Report 18024600 (Version 1)
Quarter: 2020Q3

REPORT INFORMATION
  Report Type: Spontaneous
  Country: US (occurrence: US)
  Receive Date: 20200714
  Receipt Date: 20200714
  Transmission Date: 20201103
  Serious: Yes (Hospitalization, Other)
  Sender: FDA-Public Use
  Company Number: US-009507513-2007USA004123

PATIENT
  Sex: Female

DRUGS (3)
  1. KEYTRUDA [Suspect]
     Active Substance: PEMBROLIZUMAB
     Indication: NON-SMALL CELL LUNG CANCER METASTATIC
     Dosage: 200 MILLIGRAM, 3 OF 12 CYCLES
     Route: 042
     Dates: start: 20190413, end: 20190508
  2. PACLITAXEL. [Suspect]
     Active Substance: PACLITAXEL
     Indication: NON-SMALL CELL LUNG CANCER METASTATIC
     Dosage: 294 MILLIGRAM
     Dates: start: 20190413, end: 20190508
  3. CARBOPLATIN. [Suspect]
     Active Substance: CARBOPLATIN
     Indication: NON-SMALL CELL LUNG CANCER METASTATIC
     Dosage: 750 MILLIGRAM, 3 OF 6 CYCLES
     Route: 042
     Dates: start: 20190413, end: 20190508

REACTIONS (3)
  - Malignant pleural effusion [Unknown]
  - Catheter site infection [Unknown]
  - Pneumothorax [Unknown]

NARRATIVE: CASE EVENT DATE: 20190514
